FAERS Safety Report 5457958-1 (Version None)
Quarter: 2007Q3

REPORT INFORMATION
  Report Type: 
  Country: None (occurrence: None)
  Receive Date: 20070917
  Receipt Date: 20070904
  Transmission Date: 20080115
  Serious: Yes (Other)
  Sender: FDA-Public Use
  Company Number: US021190

PATIENT
  Age: 49 Year
  Sex: Male

DRUGS (1)
  1. FENTORA [Suspect]
     Dosage: BUCCAL
     Route: 002
     Dates: start: 20070508

REACTIONS (2)
  - INTENTIONAL DRUG MISUSE [None]
  - SUICIDE ATTEMPT [None]
